FAERS Safety Report 19905055 (Version 1)
Quarter: 2021Q4

REPORT INFORMATION
  Report Type: Spontaneous
  Country: US (occurrence: US)
  Receive Date: 20211001
  Receipt Date: 20211001
  Transmission Date: 20220303
  Serious: Yes (Other)
  Sender: FDA-Public Use
  Company Number: US-009507513-2110USA000093

PATIENT
  Age: 66 Year
  Sex: Female

DRUGS (2)
  1. KEYTRUDA [Suspect]
     Active Substance: PEMBROLIZUMAB
     Indication: Endometrial cancer
     Dosage: UNK
  2. LENVATINIB MESYLATE [Suspect]
     Active Substance: LENVATINIB MESYLATE
     Indication: Endometrial cancer
     Dosage: 16 MILLIGRAM, DAILY
     Route: 048
     Dates: start: 20210721

REACTIONS (6)
  - Neuropathy peripheral [Recovering/Resolving]
  - Neuropathy peripheral [Not Recovered/Not Resolved]
  - Dry mouth [Unknown]
  - Gastric disorder [Unknown]
  - Hypertension [Unknown]
  - Incorrect dose administered [Unknown]

NARRATIVE: CASE EVENT DATE: 20210721
